FAERS Safety Report 6137354-4 (Version None)
Quarter: 2009Q1

REPORT INFORMATION
  Report Type: 
  Country: None (occurrence: None)
  Receive Date: 20090330
  Receipt Date: 20090323
  Transmission Date: 20090719
  Serious: No
  Sender: FDA-Public Use
  Company Number: US-B.I. PHARMACEUTICALS,INC./RIDGEFIELD-2009-BP-03536BP

PATIENT
  Sex: Male

DRUGS (1)
  1. COMBIVENT [Suspect]
     Indication: PNEUMONIA
     Route: 055
     Dates: start: 20080301

REACTIONS (5)
  - ACNE [None]
  - DRUG INEFFECTIVE [None]
  - DYSPNOEA [None]
  - GENITAL RASH [None]
  - RASH [None]
